FAERS Safety Report 17398193 (Version 1)
Quarter: 2020Q1

REPORT INFORMATION
  Report Type: Spontaneous
  Country: GR (occurrence: GR)
  Receive Date: 20200210
  Receipt Date: 20200210
  Transmission Date: 20200409
  Serious: Yes (Other)
  Sender: FDA-Public Use
  Company Number: GR-MYLANLABS-2020M1015084

PATIENT
  Age: 4 Year
  Sex: Male
  Weight: 19 kg

DRUGS (2)
  1. KLARICID [Suspect]
     Active Substance: CLARITHROMYCIN
     Indication: EAR INFECTION
     Dosage: 5.5 MILLILITER, BID
     Route: 048
     Dates: start: 20191122, end: 20191123
  2. ALGOFREN [Concomitant]
     Indication: EAR INFECTION
     Dosage: 7 MILLILITER, BID
     Route: 048
     Dates: start: 20191119, end: 20191123

REACTIONS (3)
  - Abdominal discomfort [Recovered/Resolved]
  - Oral pustule [Not Recovered/Not Resolved]
  - Asthenia [Recovered/Resolved]

NARRATIVE: CASE EVENT DATE: 20191123
